FAERS Safety Report 4409934-5 (Version None)
Quarter: 2004Q3

REPORT INFORMATION
  Report Type: 
  Country: None (occurrence: None)
  Receive Date: 20040728
  Receipt Date: 20040715
  Transmission Date: 20050211
  Serious: Yes (Other)
  Sender: FDA-Public Use
  Company Number: CH-GLAXOSMITHKLINE-B0339985A

PATIENT
  Age: 75 Year
  Sex: Male
  Weight: 70 kg

DRUGS (4)
  1. AUGMENTIN '250' [Suspect]
     Indication: ERYSIPELAS
     Dosage: 375MG THREE TIMES PER DAY
     Route: 048
     Dates: start: 20040429, end: 20040503
  2. LEUKERAN [Concomitant]
     Route: 065
     Dates: start: 20030501, end: 20040201
  3. PREDNISONE [Concomitant]
     Route: 065
     Dates: start: 20030501, end: 20040201
  4. ELIXIR DE PRUNELLE WELEDA [Concomitant]
     Route: 065

REACTIONS (10)
  - BLOOD LACTATE DEHYDROGENASE INCREASED [None]
  - C-REACTIVE PROTEIN INCREASED [None]
  - DERMATITIS BULLOUS [None]
  - LYMPHADENITIS [None]
  - PROTEIN TOTAL DECREASED [None]
  - PRURITUS [None]
  - PURPURA [None]
  - RASH [None]
  - SKIN BLEEDING [None]
  - SKIN NECROSIS [None]
